FAERS Safety Report 9438185 (Version 1)
Quarter: 2013Q3

REPORT INFORMATION
  Report Type: Spontaneous
  Country: US (occurrence: US)
  Receive Date: 20130802
  Receipt Date: 20130802
  Transmission Date: 20140515
  Serious: No
  Sender: FDA-Public Use
  Company Number: US-BRISTOL-MYERS SQUIBB COMPANY-17366766

PATIENT
  Sex: Male

DRUGS (4)
  1. ORENCIA [Suspect]
     Indication: RHEUMATOID ARTHRITIS
     Route: 042
  2. COUMADIN [Suspect]
  3. TYLENOL [Concomitant]
  4. KEPPRA [Concomitant]

REACTIONS (3)
  - Prostate infection [Unknown]
  - Acne [Unknown]
  - Headache [Unknown]
